FAERS Safety Report 8187343-3 (Version None)
Quarter: 2012Q1

REPORT INFORMATION
  Report Type: 
  Country: None (occurrence: None)
  Receive Date: 20120306
  Receipt Date: 20120227
  Transmission Date: 20120608
  Serious: Yes (Hospitalization, Other)
  Sender: FDA-Public Use
  Company Number: CA-JNJFOC-20120214252

PATIENT
  Sex: Male
  Weight: 77.11 kg

DRUGS (1)
  1. REMICADE [Suspect]
     Indication: CROHN'S DISEASE
     Dosage: 4 VIALS
     Route: 042

REACTIONS (2)
  - CROHN'S DISEASE [None]
  - WEIGHT DECREASED [None]
